FAERS Safety Report 13635683 (Version 1)
Quarter: 2017Q2

REPORT INFORMATION
  Report Type: Report from Study
  Country: FR (occurrence: FR)
  Receive Date: 20170609
  Receipt Date: 20170609
  Transmission Date: 20170830
  Serious: Yes (Other)
  Sender: FDA-Public Use
  Company Number: FR-ASTELLAS-2017US022737

PATIENT

DRUGS (1)
  1. AMPHOTERICIN B, LIPOSOME [Suspect]
     Active Substance: AMPHOTERICIN B
     Indication: CANDIDA INFECTION
     Dosage: 10 MG/KG, ONCE WEEKLY FOR 2 WEEKS
     Route: 042

REACTIONS (1)
  - Supraventricular tachycardia [Unknown]
